FAERS Safety Report 23521717 (Version 2)
Quarter: 2024Q2

REPORT INFORMATION
  Report Type: Spontaneous
  Country: CA (occurrence: CA)
  Receive Date: 20240214
  Receipt Date: 20240401
  Transmission Date: 20240715
  Serious: Yes (Death)
  Sender: FDA-Public Use
  Company Number: CA-HLS-202400436

PATIENT
  Age: 54 Year
  Sex: Female

DRUGS (1)
  1. CLOZAPINE [Suspect]
     Active Substance: CLOZAPINE
     Indication: Product used for unknown indication
     Dosage: TABLETS DOSAGE FORM
     Route: 065

REACTIONS (3)
  - Cardiac arrest [Fatal]
  - Neutrophil count decreased [Fatal]
  - White blood cell count decreased [Fatal]
